FAERS Safety Report 6661431-2 (Version None)
Quarter: 2010Q1

REPORT INFORMATION
  Report Type: 
  Country: None (occurrence: None)
  Receive Date: 20100331
  Receipt Date: 20091104
  Transmission Date: 20100710
  Serious: Yes (Hospitalization, Other)
  Sender: FDA-Public Use
  Company Number: PHHY2009TW61030

PATIENT

DRUGS (2)
  1. EXJADE [Suspect]
     Dosage: 8 TABLETS
  2. EXJADE [Suspect]
     Dosage: 6 TABLETS

REACTIONS (6)
  - BLOOD GLUCOSE DECREASED [None]
  - CELLULITIS [None]
  - FALL [None]
  - HERNIA [None]
  - MICTURITION URGENCY [None]
  - PRURITUS [None]
